FAERS Safety Report 20788003 (Version 13)
Quarter: 2023Q1

REPORT INFORMATION
  Report Type: Report from Study
  Country: CN (occurrence: None)
  Receive Date: 20220505
  Receipt Date: 20230218
  Transmission Date: 20230417
  Serious: Yes (Hospitalization)
  Sender: FDA-Public Use
  Company Number: CN-ROCHE-3085029

PATIENT
  Age: 62 Year
  Sex: Male
  Weight: 72 kg

DRUGS (41)
  1. ATEZOLIZUMAB [Suspect]
     Active Substance: ATEZOLIZUMAB
     Indication: Lung adenocarcinoma
     Dosage: START DATE OF MOST RECENT DOSE OF STUDY DRUG PRIOR TO AE/SAE ON 13/APR/2022.
     Route: 041
     Dates: start: 20210813
  2. BEVACIZUMAB [Suspect]
     Active Substance: BEVACIZUMAB
     Indication: Lung adenocarcinoma
     Dosage: ON 02/MAR/2022, RECEIVED MOST RECENT DOSE 1110 MG PRIOR TO AE/SAE
     Route: 042
     Dates: start: 20210813
  3. CARBOPLATIN [Suspect]
     Active Substance: CARBOPLATIN
     Indication: Lung adenocarcinoma
     Dosage: DOSE LAST STUDY DRUG ADMIN PRIOR AE/SAE WAS 450 MG ON 11/NOV/2021
     Route: 042
     Dates: start: 20210813
  4. PEMETREXED [Suspect]
     Active Substance: PEMETREXED
     Indication: Lung adenocarcinoma
     Dosage: DOSE LAST STUDY DRUG ADMIN PRIOR AE/SAE IS 450 MG ON 13/APR/2022
     Route: 042
     Dates: start: 20210813
  5. FOLIC ACID [Concomitant]
     Active Substance: FOLIC ACID
     Dates: start: 20210721
  6. NIFEDIPINE [Concomitant]
     Active Substance: NIFEDIPINE
     Indication: Hypertension
     Dates: start: 20210721
  7. SHENG XUE XIAO BAN [Concomitant]
     Indication: Platelet count decreased
     Dates: start: 20210903, end: 20220720
  8. SHENG XUE XIAO BAN [Concomitant]
     Indication: Anaemia prophylaxis
     Dates: start: 20211028
  9. DEXAMETHASONE [Concomitant]
     Active Substance: DEXAMETHASONE
     Route: 048
     Dates: start: 20220412, end: 20220414
  10. DEXAMETHASONE [Concomitant]
     Active Substance: DEXAMETHASONE
     Route: 048
     Dates: start: 20220622, end: 20220624
  11. BICYCLOL [Concomitant]
     Active Substance: BICYCLOL
     Indication: Alanine aminotransferase
     Dates: start: 20220324, end: 20220326
  12. THROMBOPOIETIN [Concomitant]
     Active Substance: THROMBOPOIETIN
     Indication: Platelet count decreased
     Dates: start: 20220331, end: 20220401
  13. THROMBOPOIETIN [Concomitant]
     Active Substance: THROMBOPOIETIN
     Dates: start: 20220419, end: 20220422
  14. THROMBOPOIETIN [Concomitant]
     Active Substance: THROMBOPOIETIN
     Dates: start: 20220424, end: 20220428
  15. ACETYLCYSTEINE [Concomitant]
     Active Substance: ACETYLCYSTEINE
     Dates: start: 20220413, end: 20220413
  16. ACETYLCYSTEINE [Concomitant]
     Active Substance: ACETYLCYSTEINE
     Dates: start: 20220623, end: 20220623
  17. ACETYLCYSTEINE [Concomitant]
     Active Substance: ACETYLCYSTEINE
     Dates: start: 20220627, end: 20220701
  18. FAMOTIDINE [Concomitant]
     Active Substance: FAMOTIDINE
     Dates: start: 20220413, end: 20220413
  19. FAMOTIDINE [Concomitant]
     Active Substance: FAMOTIDINE
     Dates: start: 20220428, end: 20220505
  20. FAMOTIDINE [Concomitant]
     Active Substance: FAMOTIDINE
     Dates: start: 20220623, end: 20220623
  21. FAMOTIDINE [Concomitant]
     Active Substance: FAMOTIDINE
     Dates: start: 20220627, end: 20220701
  22. TROPISETRON HYDROCHLORIDE AND SODIUM CHLORIDE [Concomitant]
     Indication: Prophylaxis of nausea and vomiting
     Dates: start: 20220413, end: 20220413
  23. TROPISETRON HYDROCHLORIDE AND SODIUM CHLORIDE [Concomitant]
     Indication: Prophylaxis of nausea and vomiting
  24. MESALAMINE [Concomitant]
     Active Substance: MESALAMINE
     Indication: Haemorrhoids
     Dates: start: 20220420, end: 20220428
  25. MESALAMINE [Concomitant]
     Active Substance: MESALAMINE
     Dates: start: 20220420, end: 20220428
  26. RECOMBINANT HUMAN GRANULOCYTE COLONY STIMULATING FACTOR (UNK INGREDIEN [Concomitant]
     Indication: Neutrophil count decreased
     Dates: start: 20220331, end: 20220331
  27. POLYETHYLENE GLYCOL ELECTROLYTES [Concomitant]
     Route: 042
     Dates: start: 20220422, end: 20220422
  28. POLYETHYLENE GLYCOL ELECTROLYTES [Concomitant]
     Route: 042
     Dates: start: 20220511, end: 20220511
  29. PUJI HEMORRHOIDS SUPPOSITORY [Concomitant]
     Indication: Haemorrhoids
     Dates: start: 20220420, end: 20220424
  30. ACETAMINOPHEN\DIHYDROCODEINE BITARTRATE [Concomitant]
     Active Substance: ACETAMINOPHEN\DIHYDROCODEINE BITARTRATE
     Indication: Haemorrhoids
     Dates: start: 20220513, end: 20220513
  31. ACETAMINOPHEN\DIHYDROCODEINE BITARTRATE [Concomitant]
     Active Substance: ACETAMINOPHEN\DIHYDROCODEINE BITARTRATE
     Indication: Pain
  32. PROPOFOL [Concomitant]
     Active Substance: PROPOFOL
     Indication: Haemorrhoids
     Dates: start: 20220422, end: 20220422
  33. AZASETRON HYDROCHLORIDE [Concomitant]
     Active Substance: AZASETRON HYDROCHLORIDE
     Indication: Prophylaxis of nausea and vomiting
     Dates: start: 20220623, end: 20220623
  34. AZASETRON HYDROCHLORIDE [Concomitant]
     Active Substance: AZASETRON HYDROCHLORIDE
     Indication: Prophylaxis of nausea and vomiting
  35. BENOXINATE HYDROCHLORIDE [Concomitant]
     Active Substance: BENOXINATE HYDROCHLORIDE
     Indication: Analgesic therapy
     Dates: start: 20220420
  36. BENOXINATE HYDROCHLORIDE [Concomitant]
     Active Substance: BENOXINATE HYDROCHLORIDE
     Indication: Haemorrhoids
  37. DYCLONINE HYDROCHLORIDE [Concomitant]
     Active Substance: DYCLONINE HYDROCHLORIDE
     Indication: Haemorrhoids
     Dates: start: 20220420, end: 20220420
  38. DYCLONINE HYDROCHLORIDE [Concomitant]
     Active Substance: DYCLONINE HYDROCHLORIDE
     Dates: start: 20220422, end: 20220422
  39. DYCLONINE HYDROCHLORIDE [Concomitant]
     Active Substance: DYCLONINE HYDROCHLORIDE
     Dates: start: 20220511, end: 20220511
  40. CEFTRIAXONE SODIUM [Concomitant]
     Active Substance: CEFTRIAXONE SODIUM
     Indication: Haemorrhoids
     Dates: start: 20220513, end: 20220513
  41. BACILLUS LICHENIFORMIS GRANULES, LIVE [Concomitant]
     Indication: Diarrhoea
     Dates: start: 20220627, end: 20220630

REACTIONS (1)
  - Colitis [Not Recovered/Not Resolved]

NARRATIVE: CASE EVENT DATE: 20220424
